FAERS Safety Report 9980964 (Version 1)
Quarter: 2014Q1

REPORT INFORMATION
  Report Type: Spontaneous
  Country: IT (occurrence: None)
  Receive Date: 20140305
  Receipt Date: 20140305
  Transmission Date: 20141002
  Serious: Yes (Other)
  Sender: FDA-Public Use
  Company Number: AUR-APL-2014-02145

PATIENT
  Age: 44 Year
  Sex: Male

DRUGS (2)
  1. RAMIPRIL [Suspect]
     Indication: HYPERTENSION
     Dosage: 1 D
     Route: 048
     Dates: start: 20131101, end: 20140120
  2. NORVASC [Suspect]
     Indication: HYPERTENSION
     Dosage: 1 D
     Route: 048
     Dates: start: 20131101, end: 20140120

REACTIONS (2)
  - Treatment failure [None]
  - Hypertension [None]
